FAERS Safety Report 7824531-7 (Version None)
Quarter: 2011Q4

REPORT INFORMATION
  Report Type: 
  Country: None (occurrence: None)
  Receive Date: 20111019
  Receipt Date: 20111005
  Transmission Date: 20120403
  Serious: Yes (Hospitalization)
  Sender: FDA-Public Use
  Company Number: US-BAYER-201025028NA

PATIENT
  Age: 27 Year
  Sex: Female
  Weight: 52.154 kg

DRUGS (1)
  1. YASMIN [Suspect]
     Indication: ACNE
     Dosage: UNK
     Route: 048
     Dates: start: 20050523, end: 20070531

REACTIONS (7)
  - GAIT DISTURBANCE [None]
  - HYPOAESTHESIA [None]
  - COORDINATION ABNORMAL [None]
  - HEADACHE [None]
  - DIPLOPIA [None]
  - CEREBROVASCULAR ACCIDENT [None]
  - HYPOAESTHESIA ORAL [None]
